FAERS Safety Report 15092953 (Version 1)
Quarter: 2018Q2

REPORT INFORMATION
  Report Type: Spontaneous
  Country: DE (occurrence: DE)
  Receive Date: 20180629
  Receipt Date: 20180629
  Transmission Date: 20180711
  Serious: Yes (Death)
  Sender: FDA-Public Use
  Company Number: PHHY2018DE031945

PATIENT
  Age: 63 Year

DRUGS (1)
  1. PACLITAXEL. [Suspect]
     Active Substance: PACLITAXEL
     Indication: HEAD AND NECK CANCER
     Dosage: 20 MG/M2, UNK (TWICE PER WEEK)
     Route: 065

REACTIONS (4)
  - Stomatitis [Unknown]
  - Metastases to bone [Fatal]
  - Head and neck cancer [Fatal]
  - Anaemia [Unknown]
